FAERS Safety Report 14527570 (Version 1)
Quarter: 2018Q1

REPORT INFORMATION
  Report Type: Spontaneous
  Country: DE (occurrence: DE)
  Receive Date: 20180213
  Receipt Date: 20180213
  Transmission Date: 20180509
  Serious: Yes (Other)
  Sender: FDA-Public Use
  Company Number: DE-MYLANLABS-2018M1010095

PATIENT
  Age: 62 Year
  Sex: Male

DRUGS (3)
  1. RISPERIDONE. [Concomitant]
     Active Substance: RISPERIDONE
     Indication: PRODUCT USED FOR UNKNOWN INDICATION
     Dosage: 3 MG, QD
  2. LEPONEX [Suspect]
     Active Substance: CLOZAPINE
     Dosage: 400 MG, QD
  3. LEPONEX [Suspect]
     Active Substance: CLOZAPINE
     Indication: PRODUCT USED FOR UNKNOWN INDICATION
     Dosage: 600 MG, QD

REACTIONS (11)
  - Atrial flutter [Recovered/Resolved]
  - Atrial fibrillation [Recovered/Resolved]
  - Pericardial effusion [Unknown]
  - Electrocardiogram ST segment abnormal [Unknown]
  - Myocarditis [Unknown]
  - Pleural effusion [Unknown]
  - Antipsychotic drug level increased [Unknown]
  - Cardiac failure [Unknown]
  - Affect lability [Unknown]
  - Pericarditis [Unknown]
  - Decreased interest [Unknown]
